FAERS Safety Report 5308198-8 (Version None)
Quarter: 2007Q2

REPORT INFORMATION
  Report Type: 
  Country: None (occurrence: None)
  Receive Date: 20070423
  Receipt Date: 20070423
  Transmission Date: 20071010
  Serious: Yes (Other)
  Sender: FDA-Public Use
  Company Number: None

PATIENT
  Age: 76 Year
  Sex: Male
  Weight: 125.4 kg

DRUGS (2)
  1. EZETIMIBE [Suspect]
     Indication: HYPERLIPIDAEMIA
     Dosage: 5 MG  NIGHTLY  PO
     Route: 048
     Dates: start: 20061220, end: 20070208
  2. EZETIMIBE [Suspect]
     Indication: HYPERLIPIDAEMIA
     Dosage: 10 MG   NIGHTLY  PO
     Route: 048
     Dates: start: 20070208, end: 20070410

REACTIONS (1)
  - LEUKOCYTOCLASTIC VASCULITIS [None]
